FAERS Safety Report 8493337-0 (Version None)
Quarter: 2012Q3

REPORT INFORMATION
  Report Type: 
  Country: None (occurrence: None)
  Receive Date: 20120706
  Receipt Date: 20120629
  Transmission Date: 20120928
  Serious: Yes (Hospitalization)
  Sender: FDA-Public Use
  Company Number: CN-JNJFOC-20111004587

PATIENT
  Sex: Male
  Weight: 55.5 kg

DRUGS (6)
  1. LORAZEPAM [Concomitant]
     Indication: SLEEP DISORDER
     Dates: start: 20110719, end: 20110829
  2. PALIPERIDONE PALMITATE [Suspect]
     Route: 030
     Dates: start: 20101230, end: 20110922
  3. CLONAZEPAM [Concomitant]
     Indication: SLEEP DISORDER
     Dates: start: 20110830, end: 20110921
  4. LORAZEPAM [Concomitant]
     Dates: start: 20110922
  5. ARTANE [Concomitant]
     Indication: MUSCULOSKELETAL STIFFNESS
     Dates: start: 20110331
  6. PALIPERIDONE PALMITATE [Suspect]
     Indication: SCHIZOPHRENIA
     Route: 030
     Dates: start: 20110922, end: 20110922

REACTIONS (1)
  - SCHIZOPHRENIA [None]
